FAERS Safety Report 10160961 (Version 2)
Quarter: 2014Q2

REPORT INFORMATION
  Report Type: Spontaneous
  Country: US (occurrence: US)
  Receive Date: 20140508
  Receipt Date: 20140515
  Transmission Date: 20141212
  Serious: Yes (Other)
  Sender: FDA-Public Use
  Company Number: US-BAXTER-2014BAX022372

PATIENT
  Sex: Female
  Weight: 89.44 kg

DRUGS (5)
  1. BEBULIN [Suspect]
     Indication: FACTOR X DEFICIENCY
     Dosage: 1700 UNITS AS NEEDED
     Route: 042
     Dates: start: 1998
  2. BEBULIN [Suspect]
     Dosage: 3400 UNITS AS NEEDED
     Route: 042
     Dates: start: 1998
  3. BEBULIN [Suspect]
     Dosage: 1700 UNITS AS NEEDED
     Route: 042
     Dates: start: 201104
  4. XANAX [Concomitant]
     Indication: ANXIETY
     Dosage: AS NEEDED
     Route: 048
  5. XANAX [Concomitant]

REACTIONS (6)
  - Haemarthrosis [Recovered/Resolved with Sequelae]
  - Muscle haemorrhage [Recovered/Resolved with Sequelae]
  - Ovarian cyst [Not Recovered/Not Resolved]
  - Expired product administered [Recovered/Resolved]
  - Drug ineffective [Recovered/Resolved]
  - Arthralgia [Recovered/Resolved]
